FAERS Safety Report 9753531 (Version 1)
Quarter: 2013Q4

REPORT INFORMATION
  Report Type: Spontaneous
  Country: US (occurrence: US)
  Receive Date: 20131213
  Receipt Date: 20131213
  Transmission Date: 20140711
  Serious: No
  Sender: FDA-Public Use
  Company Number: US-BAYER-2013-152420

PATIENT
  Age: 19 Year
  Sex: Female

DRUGS (2)
  1. GIANVI [Suspect]
     Indication: CONTRACEPTION
     Dosage: UNK
     Route: 048
     Dates: start: 2012
  2. AMOXICILLIN [Interacting]
     Dosage: 875 MG, BID
     Route: 048
     Dates: start: 20131205

REACTIONS (1)
  - Drug interaction [None]
